FAERS Safety Report 19787220 (Version 1)
Quarter: 2021Q3

REPORT INFORMATION
  Report Type: Spontaneous
  Country: BE (occurrence: BE)
  Receive Date: 20210903
  Receipt Date: 20210903
  Transmission Date: 20211014
  Serious: Yes (Hospitalization, Other)
  Sender: FDA-Public Use
  Company Number: BE-PFIZER INC-202101108147

PATIENT
  Age: 63 Year
  Sex: Male
  Weight: 79 kg

DRUGS (6)
  1. CYTARABINE. [Suspect]
     Active Substance: CYTARABINE
     Dosage: ONCE EVERY 3 WEEKS (CYCLE 1?3)
     Route: 042
  2. EPCORITAMAB. [Suspect]
     Active Substance: EPCORITAMAB
     Dosage: 0.16 MG, SINGLE
     Route: 058
  3. CARBOPLATIN. [Suspect]
     Active Substance: CARBOPLATIN
     Dosage: ONCE EVERY 3 WEEKS (CYCLE 1?3)
     Route: 042
  4. DEXAMETHASONE. [Suspect]
     Active Substance: DEXAMETHASONE
     Dosage: DAY 1?4 OF EACH 21?DAY CYCLE (CYCLE 1?3)
  5. RITUXIMAB. [Suspect]
     Active Substance: RITUXIMAB
     Dosage: ONCE EVERY 3 WEEKS (CYCLE 1?3)
     Route: 042
  6. OXALIPLATIN. [Suspect]
     Active Substance: OXALIPLATIN
     Dosage: ONCE EVERY 3 WEEKS (CYCLE 1?3)
     Route: 042

REACTIONS (1)
  - Tumour lysis syndrome [Not Recovered/Not Resolved]

NARRATIVE: CASE EVENT DATE: 20210807
